FAERS Safety Report 20826574 (Version 1)
Quarter: 2022Q2

REPORT INFORMATION
  Report Type: Report from Study
  Country: US (occurrence: US)
  Receive Date: 20220513
  Receipt Date: 20220513
  Transmission Date: 20220721
  Serious: No
  Sender: FDA-Public Use
  Company Number: US-CELGENE-USA-20220207382

PATIENT
  Age: 42 Year
  Sex: Male
  Weight: 72.57 kg

DRUGS (1)
  1. ZEPOSIA [Suspect]
     Active Substance: OZANIMOD HYDROCHLORIDE
     Indication: Colitis ulcerative
     Dosage: 0.23-0.92 MILLIGRAM
     Route: 048
     Dates: start: 20220207

REACTIONS (2)
  - Colitis ulcerative [Unknown]
  - Product use issue [Unknown]

NARRATIVE: CASE EVENT DATE: 20220207
